FAERS Safety Report 5962904-8 (Version None)
Quarter: 2008Q4

REPORT INFORMATION
  Report Type: 
  Country: None (occurrence: None)
  Receive Date: 20081119
  Receipt Date: 20081119
  Transmission Date: 20090506
  Serious: Yes (Hospitalization)
  Sender: FDA-Public Use
  Company Number: None

PATIENT
  Sex: Male
  Weight: 81 kg

DRUGS (10)
  1. TEMOZOLOMIDE [Suspect]
     Dosage: 3360 MG
  2. HYDROXYCHLOROQUINE SULFATE [Suspect]
  3. ALPRAZOLAM [Concomitant]
  4. AMLODIPINE [Concomitant]
  5. CIPRO [Concomitant]
  6. DEXAMETHASONE [Concomitant]
  7. NEUPOGEN [Concomitant]
  8. PANTOPRAZOLE SODIUM [Concomitant]
  9. SIMVASTATIN [Concomitant]
  10. ZOFRAN [Concomitant]

REACTIONS (2)
  - NEUTROPENIA [None]
  - PYREXIA [None]
